FAERS Safety Report 25011624 (Version 2)
Quarter: 2025Q3

REPORT INFORMATION
  Report Type: Spontaneous
  Country: US (occurrence: US)
  Receive Date: 20250226
  Receipt Date: 20250802
  Transmission Date: 20251020
  Serious: Yes (Other)
  Sender: ALEXION PHARMACEUTICALS
  Company Number: US-AstraZeneca-CH-00810767A

PATIENT

DRUGS (3)
  1. SEROQUEL [Suspect]
     Active Substance: QUETIAPINE FUMARATE
     Indication: Serotonin deficiency
     Route: 065
  2. MELATONIN [Concomitant]
     Active Substance: MELATONIN
     Route: 065
  3. SEROTONIN [Concomitant]
     Active Substance: SEROTONIN
     Route: 065

REACTIONS (4)
  - Cardiac failure [Unknown]
  - Fluid retention [Unknown]
  - Heart rate increased [Unknown]
  - Vision blurred [Unknown]
